FAERS Safety Report 9311580 (Version 2)
Quarter: 2013Q2

REPORT INFORMATION
  Report Type: Report from Study
  Country: DE (occurrence: DE)
  Receive Date: 20130528
  Receipt Date: 20130531
  Transmission Date: 20140414
  Serious: Yes (Death)
  Sender: FDA-Public Use
  Company Number: DE-SANOFI-AVENTIS-2013SA052103

PATIENT
  Age: 47 Year
  Sex: Female
  Weight: 77 kg

DRUGS (9)
  1. CABAZITAXEL [Suspect]
     Indication: BREAST CANCER
     Route: 042
     Dates: start: 20130508, end: 20130508
  2. CABAZITAXEL [Suspect]
     Indication: BREAST CANCER
     Route: 042
     Dates: start: 20130417, end: 20130417
  3. FILGRASTIM [Concomitant]
     Dosage: 48 MIO E
     Dates: start: 20130425, end: 20130516
  4. BETA BLOCKING AGENTS [Concomitant]
  5. ANTIEMETICS AND ANTINAUSEANTS [Concomitant]
  6. ANTIHISTAMINES [Concomitant]
  7. H2-RECEPTOR ANTAGONISTS [Concomitant]
  8. DEXAMETHASONE [Concomitant]
  9. G-CSF [Concomitant]

REACTIONS (1)
  - Death [Fatal]
